FAERS Safety Report 24529706 (Version 1)
Quarter: 2024Q4

REPORT INFORMATION
  Report Type: Spontaneous
  Country: CA (occurrence: CA)
  Receive Date: 20241021
  Receipt Date: 20241021
  Transmission Date: 20250115
  Serious: Yes (Hospitalization, Other)
  Sender: TEVA
  Company Number: CA-TEVA-VS-3254549

PATIENT
  Age: 41 Year
  Sex: Female

DRUGS (1)
  1. VALACYCLOVIR HYDROCHLORIDE [Suspect]
     Active Substance: VALACYCLOVIR HYDROCHLORIDE
     Indication: Product used for unknown indication
     Route: 065

REACTIONS (8)
  - Coronary artery occlusion [Unknown]
  - Pneumonia [Unknown]
  - Anxiety [Unknown]
  - Autoimmune disorder [Unknown]
  - Product prescribing error [Unknown]
  - Off label use [Unknown]
  - Extra dose administered [Unknown]
  - Myocardial infarction [Unknown]
